FAERS Safety Report 9228304 (Version 1)
Quarter: 2013Q2

REPORT INFORMATION
  Report Type: Spontaneous
  Country: JP (occurrence: JP)
  Receive Date: 20130412
  Receipt Date: 20130412
  Transmission Date: 20140414
  Serious: Yes (Death)
  Sender: FDA-Public Use
  Company Number: JP-ROCHE-1211610

PATIENT
  Sex: Male

DRUGS (1)
  1. TAMIFLU [Suspect]
     Indication: INFLUENZA
     Dosage: THE DOSAGE AMOUNT WAS ONE-TENTH OF HEALTHY SUBJECT.
     Route: 048

REACTIONS (1)
  - Sudden death [Fatal]
